FAERS Safety Report 8391132-4 (Version None)
Quarter: 2012Q2

REPORT INFORMATION
  Report Type: 
  Country: None (occurrence: None)
  Receive Date: 20120529
  Receipt Date: 20120524
  Transmission Date: 20120825
  Serious: No
  Sender: FDA-Public Use
  Company Number: US-B.I. PHARMACEUTICALS,INC./RIDGEFIELD-2012-BP-06711BP

PATIENT
  Sex: Female

DRUGS (6)
  1. OSTEO BIFLEX [Concomitant]
     Indication: PROPHYLAXIS
     Route: 048
     Dates: start: 20020101
  2. VERAPAMIL HCL [Concomitant]
     Indication: HYPERTENSION
     Route: 048
     Dates: start: 19900101
  3. SPIRIVA [Suspect]
     Indication: EMPHYSEMA
     Dosage: 18 MCG
     Route: 055
     Dates: start: 20120408
  4. COMBIGAN [Concomitant]
     Indication: GLAUCOMA
     Dates: start: 20120201
  5. OSTEO BIFLEX [Concomitant]
     Route: 048
     Dates: start: 20020101
  6. LATANOPROST [Concomitant]
     Indication: GLAUCOMA
     Dates: start: 20120201

REACTIONS (1)
  - DRUG INEFFECTIVE [None]
